FAERS Safety Report 20006527 (Version 1)
Quarter: 2021Q4

REPORT INFORMATION
  Report Type: Spontaneous
  Country: US (occurrence: US)
  Receive Date: 20211028
  Receipt Date: 20211028
  Transmission Date: 20220303
  Serious: No
  Sender: FDA-Public Use
  Company Number: None

PATIENT
  Age: 76 Year
  Sex: Female
  Weight: 71.55 kg

DRUGS (8)
  1. CAPECITABINE [Suspect]
     Active Substance: CAPECITABINE
     Indication: Pancreatic carcinoma
     Dosage: ?          OTHER FREQUENCY:BID MON-FRI;????OTHER FREQUENCY : UD
     Route: 048
     Dates: start: 20210923
  2. LEVOTHYROXINE [Concomitant]
     Active Substance: LEVOTHYROXINE
  3. Lidocaine-Prilocaine 2.5-2.5% [Concomitant]
  4. METFORMIN HYDROCHLORIDE [Concomitant]
     Active Substance: METFORMIN HYDROCHLORIDE
  5. METOPROLOL TARTRATE [Concomitant]
     Active Substance: METOPROLOL TARTRATE
  6. Adalat CC 90mg [Concomitant]
  7. Olmesartan-Amlodipine-HCTZ 40-10-12.5mg [Concomitant]
  8. ZOFRAN [Concomitant]
     Active Substance: ONDANSETRON HYDROCHLORIDE

REACTIONS (2)
  - Constipation [None]
  - Fatigue [None]

NARRATIVE: CASE EVENT DATE: 20211028
